FAERS Safety Report 8620817-7 (Version None)
Quarter: 2012Q3

REPORT INFORMATION
  Report Type: 
  Country: None (occurrence: None)
  Receive Date: 20120824
  Receipt Date: 20120820
  Transmission Date: 20120928
  Serious: Yes (Hospitalization, Other)
  Sender: FDA-Public Use
  Company Number: IL-ROCHE-1091975

PATIENT
  Age: 72 Year
  Sex: Male

DRUGS (1)
  1. AVASTIN [Suspect]
     Indication: COLON CANCER

REACTIONS (3)
  - DIHYDROPYRIMIDINE DEHYDROGENASE DEFICIENCY [None]
  - EMBOLISM [None]
  - NEUTROPENIA [None]
